FAERS Safety Report 18022268 (Version 1)
Quarter: 2020Q3

REPORT INFORMATION
  Report Type: Spontaneous
  Country: US (occurrence: US)
  Receive Date: 20200714
  Receipt Date: 20200714
  Transmission Date: 20201103
  Serious: Yes (Death, Disabling, Other)
  Sender: FDA-Public Use
  Company Number: US-PURDUE-USA-2020-0155756

PATIENT
  Sex: Male

DRUGS (1)
  1. OXYCODONE HYDROCHLORIDE (SIMILAR TO NDA 22?272) [Suspect]
     Active Substance: OXYCODONE HYDROCHLORIDE
     Indication: PAIN
     Dosage: 2 EVERY 6 HOURS
     Route: 065

REACTIONS (6)
  - Death [Fatal]
  - Impaired work ability [Unknown]
  - Emotional distress [Unknown]
  - Hepatic failure [Unknown]
  - Disability [Unknown]
  - Drug dependence [Unknown]

NARRATIVE: CASE EVENT DATE: 2012
